FAERS Safety Report 6127498-5 (Version None)
Quarter: 2009Q1

REPORT INFORMATION
  Report Type: 
  Country: None (occurrence: None)
  Receive Date: 20090319
  Receipt Date: 20090313
  Transmission Date: 20090719
  Serious: Yes (Hospitalization)
  Sender: FDA-Public Use
  Company Number: THQ2009A01130

PATIENT
  Age: 28 Year
  Sex: Male

DRUGS (5)
  1. ACTOS [Suspect]
     Dosage: 15 MG PER ORAL
     Route: 048
  2. CLOZAPINE [Concomitant]
  3. DESMOPRESSIN ACETATE [Concomitant]
  4. PERINDOPRIL ERBUMINE [Concomitant]
  5. METFORMIN HCL [Concomitant]

REACTIONS (1)
  - MULTIPLE DRUG OVERDOSE INTENTIONAL [None]
